FAERS Safety Report 7377260-0 (Version None)
Quarter: 2011Q1

REPORT INFORMATION
  Report Type: 
  Country: None (occurrence: None)
  Receive Date: 20110315
  Receipt Date: 20110304
  Transmission Date: 20110831
  Serious: Yes (Hospitalization)
  Sender: FDA-Public Use
  Company Number: 028670

PATIENT
  Age: 15 Year
  Sex: Male
  Weight: 76 kg

DRUGS (8)
  1. LACOSAMIDE [Suspect]
     Indication: COMPLEX PARTIAL SEIZURES
     Dosage: 50 MG, DAILY, 100 MG, 150MG, 200MG, DAILY, 300 MG, DAILY, ORAL
     Route: 048
     Dates: start: 20100730, end: 20100801
  2. LACOSAMIDE [Suspect]
     Indication: COMPLEX PARTIAL SEIZURES
     Dosage: 50 MG, DAILY, 100 MG, 150MG, 200MG, DAILY, 300 MG, DAILY, ORAL
     Route: 048
     Dates: start: 20100907
  3. LACOSAMIDE [Suspect]
     Indication: COMPLEX PARTIAL SEIZURES
     Dosage: 50 MG, DAILY, 100 MG, 150MG, 200MG, DAILY, 300 MG, DAILY, ORAL
     Route: 048
     Dates: start: 20100723, end: 20100701
  4. LACOSAMIDE [Suspect]
     Indication: COMPLEX PARTIAL SEIZURES
     Dosage: 50 MG, DAILY, 100 MG, 150MG, 200MG, DAILY, 300 MG, DAILY, ORAL
     Route: 048
     Dates: start: 20100806, end: 20100801
  5. LACOSAMIDE [Suspect]
     Indication: COMPLEX PARTIAL SEIZURES
     Dosage: 50 MG, DAILY, 100 MG, 150MG, 200MG, DAILY, 300 MG, DAILY, ORAL
     Route: 048
     Dates: start: 20100813, end: 20100901
  6. LAMICTAL [Concomitant]
  7. SINGULAIR [Concomitant]
  8. TOPAMAX [Concomitant]

REACTIONS (1)
  - CHILLS [None]
